FAERS Safety Report 24047748 (Version 1)
Quarter: 2024Q3

REPORT INFORMATION
  Report Type: Spontaneous
  Country: GB (occurrence: GB)
  Receive Date: 20240703
  Receipt Date: 20240703
  Transmission Date: 20241017
  Serious: Yes (Disabling, Other)
  Sender: TEVA
  Company Number: None

PATIENT
  Age: 75 Year
  Sex: Female
  Weight: 50 kg

DRUGS (8)
  1. ALENDRONIC ACID [Suspect]
     Active Substance: ALENDRONIC ACID
     Indication: Giant cell arteritis
     Dosage: 70MGS
     Route: 065
     Dates: start: 20180924
  2. ALENDRONIC ACID [Suspect]
     Active Substance: ALENDRONIC ACID
     Indication: Giant cell arteritis
     Dosage: 70MGS
     Route: 065
     Dates: start: 2019
  3. ASPIRIN [Concomitant]
     Active Substance: ASPIRIN
     Indication: Giant cell arteritis
     Dosage: SOLUBLE
     Dates: start: 2019
  4. STRIVIT-D3 [Concomitant]
     Indication: Hyperparathyroidism
     Dates: start: 2019
  5. Paracetamol + Naproxen [Concomitant]
     Indication: Back pain
     Dates: start: 2023
  6. OMEPRAZOLE [Concomitant]
     Active Substance: OMEPRAZOLE
     Indication: Adverse drug reaction
     Dates: start: 2019
  7. PREDNISOLONE [Concomitant]
     Active Substance: PREDNISOLONE
     Indication: Giant cell arteritis
     Dates: start: 2019
  8. LEVOTHYROXINE [Concomitant]
     Active Substance: LEVOTHYROXINE\LEVOTHYROXINE SODIUM
     Indication: Hypothyroidism
     Dates: start: 2015

REACTIONS (1)
  - Spinal fracture [Recovered/Resolved with Sequelae]

NARRATIVE: CASE EVENT DATE: 20230620
